FAERS Safety Report 5711039 (Version 2)
Quarter: 2013Q3

REPORT INFORMATION
  Report Type: Report from Study
  Country: BE (occurrence: BE)
  Receive Date: 20050110
  Receipt Date: 20130711
  Transmission Date: 20140515
  Serious: Yes (Hospitalization)
  Sender: FDA-Public Use
  Company Number: BE-JNJFOC-20041207624

PATIENT
  Age: 64 Year
  Sex: Female
  Weight: 63.2 kg

DRUGS (13)
  1. INFLIXIMAB [Suspect]
     Indication: CROHN^S DISEASE
     Route: 042
     Dates: start: 20040609, end: 20040609
  2. INFLIXIMAB [Suspect]
     Indication: CROHN^S DISEASE
     Route: 042
     Dates: start: 20040526, end: 20040526
  3. INFLIXIMAB [Suspect]
     Indication: CROHN^S DISEASE
     Route: 042
     Dates: start: 20040414, end: 20040414
  4. INFLIXIMAB [Suspect]
     Indication: CROHN^S DISEASE
     Route: 042
     Dates: start: 20040218, end: 20040218
  5. INFLIXIMAB [Suspect]
     Indication: CROHN^S DISEASE
     Route: 042
     Dates: start: 20031224, end: 20031224
  6. INFLIXIMAB [Suspect]
     Indication: CROHN^S DISEASE
     Route: 042
     Dates: start: 20031030, end: 20031030
  7. INFLIXIMAB [Suspect]
     Indication: CROHN^S DISEASE
     Route: 042
     Dates: start: 20031002, end: 20031002
  8. INFLIXIMAB [Suspect]
     Indication: CROHN^S DISEASE
     Route: 042
     Dates: start: 20030919, end: 20030919
  9. AZATHIOPRINE [Concomitant]
     Indication: CROHN^S DISEASE
     Dates: start: 20030806
  10. HYDROCORTISONE [Concomitant]
     Indication: ADRENAL INSUFFICIENCY
  11. LOPERAMIDE [Concomitant]
     Indication: DIARRHOEA
     Dosage: PRN
  12. PERENTEROL [Concomitant]
     Indication: DIARRHOEA
  13. SUPPLEMENTS [Concomitant]

REACTIONS (2)
  - Renal colic [Recovered/Resolved]
  - Nephrolithiasis [Recovered/Resolved]
